FAERS Safety Report 19453463 (Version 1)
Quarter: 2021Q2

REPORT INFORMATION
  Report Type: Spontaneous
  Country: US (occurrence: US)
  Receive Date: 20210623
  Receipt Date: 20210623
  Transmission Date: 20210717
  Serious: No
  Sender: FDA-Public Use
  Company Number: US-ACCORD-215978

PATIENT
  Sex: Male
  Weight: 177.27 kg

DRUGS (1)
  1. CLONAZEPAM ACCORD [Suspect]
     Active Substance: CLONAZEPAM
     Indication: ANXIETY
     Dosage: TWICE A DAY FOR MANY YEARS
     Route: 048

REACTIONS (4)
  - Panic attack [Unknown]
  - Drug ineffective [Unknown]
  - Drug screen negative [Unknown]
  - Off label use [Unknown]
